FAERS Safety Report 18675718 (Version 2)
Quarter: 2022Q1

REPORT INFORMATION
  Report Type: Spontaneous
  Country: DE (occurrence: DE)
  Receive Date: 20201229
  Receipt Date: 20220125
  Transmission Date: 20220423
  Serious: Yes (Hospitalization, Other)
  Sender: FDA-Public Use
  Company Number: None

PATIENT
  Age: 15 Year
  Sex: Female
  Weight: 56 kg

DRUGS (2)
  1. DICLOFENAC [Interacting]
     Active Substance: DICLOFENAC
     Indication: Suicidal ideation
     Dosage: DAILY DOSE: 50 MG MILLGRAM(S) EVERY DAYS
     Route: 048
     Dates: start: 20200621, end: 20200621
  2. METFORMIN [Interacting]
     Active Substance: METFORMIN HYDROCHLORIDE
     Indication: Suicidal ideation
     Dosage: DAILY DOSE: 50 MG MILLGRAM(S) EVERY DAYS
     Route: 048
     Dates: start: 20200621, end: 20200621

REACTIONS (4)
  - Toxicity to various agents [Unknown]
  - Hypoglycaemia [Unknown]
  - Intentional overdose [Unknown]
  - Drug interaction [Unknown]

NARRATIVE: CASE EVENT DATE: 20200621
